FAERS Safety Report 6523826-7 (Version None)
Quarter: 2009Q4

REPORT INFORMATION
  Report Type: 
  Country: None (occurrence: None)
  Receive Date: 20091231
  Receipt Date: 20091223
  Transmission Date: 20100525
  Serious: Yes (Other)
  Sender: FDA-Public Use
  Company Number: US-ROCHE-667487

PATIENT
  Age: 83 Year
  Sex: Female

DRUGS (2)
  1. BONIVA [Suspect]
     Indication: OSTEOPOROSIS
     Route: 048
     Dates: start: 20070101, end: 20080101
  2. FOSAMAX [Suspect]
     Indication: OSTEOPOROSIS
     Route: 065
     Dates: start: 20020101, end: 20070101

REACTIONS (3)
  - EATING DISORDER [None]
  - OSTEONECROSIS [None]
  - TOOTH EXTRACTION [None]
